FAERS Safety Report 5664135-8 (Version None)
Quarter: 2008Q1

REPORT INFORMATION
  Report Type: 
  Country: None (occurrence: None)
  Receive Date: 20080312
  Receipt Date: 20080306
  Transmission Date: 20080703
  Serious: Yes (Life-Threatening, Hospitalization, Other)
  Sender: FDA-Public Use
  Company Number: 08032426

PATIENT
  Age: 62 Year
  Sex: Male

DRUGS (10)
  1. LIDOCAINE [Suspect]
     Indication: ANAESTHESIA
     Dosage: TOPICAL
     Route: 061
  2. HURRICANE (BENZOCAINE) [Suspect]
     Indication: ANAESTHESIA
     Dosage: TOPICAL
     Route: 061
  3. CEFALEXIN (CEPHALEXIN) [Concomitant]
  4. AMITRIPTYLINE HCL [Concomitant]
  5. AMLODIPINE [Concomitant]
  6. ENOXAPARIN SODIUM (CERTOPARIN SODIUM) [Concomitant]
  7. GABAPENTIN [Concomitant]
  8. PANTOPRAZOLE SODIUM [Concomitant]
  9. OXYCODONE HCL [Concomitant]
  10. PRAVASTATIN [Concomitant]

REACTIONS (7)
  - BLOOD PH INCREASED [None]
  - CYANOSIS CENTRAL [None]
  - METHAEMOGLOBINAEMIA [None]
  - OXYGEN SATURATION DECREASED [None]
  - PO2 INCREASED [None]
  - POST PROCEDURAL COMPLICATION [None]
  - PROCEDURAL COMPLICATION [None]
